FAERS Safety Report 6517320-7 (Version None)
Quarter: 2009Q4

REPORT INFORMATION
  Report Type: 
  Country: None (occurrence: None)
  Receive Date: 20091223
  Receipt Date: 20091209
  Transmission Date: 20100525
  Serious: Yes (Other)
  Sender: FDA-Public Use
  Company Number: GB-B.I. PHARMACEUTICALS,INC./RIDGEFIELD-2009-DE-07635GD

PATIENT
  Sex: Male

DRUGS (11)
  1. NEVIRAPINE [Suspect]
     Indication: HIV INFECTION
  2. EFAVIRENZ [Suspect]
     Indication: HIV INFECTION
  3. ZIDOVUDINE [Suspect]
     Indication: HIV INFECTION
  4. LAMIVUDINE [Suspect]
     Indication: HIV INFECTION
  5. TENOFOVIR [Suspect]
     Indication: HIV INFECTION
  6. DARUNAVIR [Suspect]
     Indication: HIV INFECTION
  7. ATAZANAVIR [Suspect]
     Indication: HIV INFECTION
  8. RITONAVIR [Suspect]
     Indication: HIV INFECTION
  9. DIDANOSINE [Suspect]
     Indication: HIV INFECTION
  10. ABACAVIR [Suspect]
     Indication: HIV INFECTION
  11. LOPINAVIR [Suspect]
     Indication: HIV INFECTION

REACTIONS (2)
  - HEPATIC FIBROSIS [None]
  - PORTAL HYPERTENSION [None]
